FAERS Safety Report 8493240-6 (Version None)
Quarter: 2012Q3

REPORT INFORMATION
  Report Type: 
  Country: None (occurrence: None)
  Receive Date: 20120706
  Receipt Date: 20120702
  Transmission Date: 20120928
  Serious: Yes (Other)
  Sender: FDA-Public Use
  Company Number: PHHY2012MX057739

PATIENT
  Sex: Female

DRUGS (1)
  1. DIOVAN HCT [Suspect]
     Indication: HYPERTENSION
     Dosage: 1 DF/DAY (160 MG VALS AND 25 MG HYDR)
     Dates: start: 20110301

REACTIONS (2)
  - LOWER LIMB FRACTURE [None]
  - FALL [None]
